FAERS Safety Report 18924562 (Version 3)
Quarter: 2022Q1

REPORT INFORMATION
  Report Type: Other
  Country: US (occurrence: None)
  Receive Date: 20210223
  Receipt Date: 20220109
  Transmission Date: 20220423
  Serious: No
  Sender: FDA-Public Use
  Company Number: US-ROCHE-2774841

PATIENT
  Sex: Female

DRUGS (1)
  1. OCREVUS [Suspect]
     Active Substance: OCRELIZUMAB
     Indication: Relapsing multiple sclerosis
     Dosage: PRESCRIBED WITH 300 MG ONCE IN 2 WEEKS THEN 600 MG ONCE IN 6 MONTHS.?ON 23/JUN/2020 AND 06/JUL/2020,
     Route: 065

REACTIONS (2)
  - Candida infection [Recovered/Resolved]
  - Oropharyngeal pain [Unknown]
